FAERS Safety Report 10863275 (Version 1)
Quarter: 2015Q1

REPORT INFORMATION
  Report Type: Spontaneous
  Country: CN (occurrence: CN)
  Receive Date: 20150224
  Receipt Date: 20150224
  Transmission Date: 20150721
  Serious: Yes (Other)
  Sender: FDA-Public Use
  Company Number: CN-BAYER-2015-021652

PATIENT

DRUGS (3)
  1. AVELOX [Suspect]
     Active Substance: MOXIFLOXACIN HYDROCHLORIDE
     Indication: INFECTION
     Dosage: UNK
     Dates: start: 201502, end: 201502
  2. DEXAMETHASONE. [Concomitant]
     Active Substance: DEXAMETHASONE
     Indication: INFECTION
     Dosage: UNK
     Dates: start: 201502
  3. AVELOX [Suspect]
     Active Substance: MOXIFLOXACIN HYDROCHLORIDE
     Indication: INFECTION
     Dosage: UNK
     Dates: start: 201502, end: 20150210

REACTIONS (8)
  - Skin discolouration [None]
  - Blood creatinine abnormal [None]
  - C-reactive protein abnormal [None]
  - C-reactive protein abnormal [None]
  - Neutrophil count abnormal [None]
  - Myalgia [None]
  - Bone pain [None]
  - Myalgia [None]

NARRATIVE: CASE EVENT DATE: 20150206
